FAERS Safety Report 6724466-7 (Version None)
Quarter: 2010Q2

REPORT INFORMATION
  Report Type: 
  Country: None (occurrence: None)
  Receive Date: 20100513
  Receipt Date: 20100510
  Transmission Date: 20101027
  Serious: Yes (Other)
  Sender: FDA-Public Use
  Company Number: US-RB-004948-10

PATIENT
  Age: 33 Year
  Sex: Female

DRUGS (3)
  1. SUBOXONE [Suspect]
     Dosage: OTHER DOSING DETAILS UNKNOWN
     Route: 060
     Dates: start: 20071101
  2. SEROQUEL [Concomitant]
     Indication: DRUG USE FOR UNKNOWN INDICATION
     Dosage: DOSING DETAILS UNKNOWN
     Route: 065
  3. MOBIC [Concomitant]
     Indication: MIGRAINE
     Route: 065

REACTIONS (12)
  - ANIMAL BITE [None]
  - ANXIETY [None]
  - CONCUSSION [None]
  - INTERVERTEBRAL DISC PROTRUSION [None]
  - JOINT INJURY [None]
  - LOSS OF CONSCIOUSNESS [None]
  - MUSCLE SPASMS [None]
  - NECK INJURY [None]
  - NECK PAIN [None]
  - NIGHTMARE [None]
  - PAIN [None]
  - PAIN IN EXTREMITY [None]
